FAERS Safety Report 8150628-0 (Version None)
Quarter: 2012Q1

REPORT INFORMATION
  Report Type: 
  Country: None (occurrence: None)
  Receive Date: 20120220
  Receipt Date: 20120210
  Transmission Date: 20120608
  Serious: Yes (Other)
  Sender: FDA-Public Use
  Company Number: PHBS2008CA05009

PATIENT

DRUGS (3)
  1. METHYLPHENIDATE [Suspect]
     Indication: APATHY
     Dosage: 5 MG, BID
     Route: 048
  2. CHOLINESTERASE INHIBITOR [Concomitant]
     Indication: COGNITIVE DISORDER
     Route: 065
  3. METHYLPHENIDATE [Suspect]
     Dosage: 10 MG, BID
     Route: 048

REACTIONS (7)
  - RESTLESSNESS [None]
  - DELUSION [None]
  - NIGHTMARE [None]
  - HALLUCINATION [None]
  - INSOMNIA [None]
  - DECREASED APPETITE [None]
  - IRRITABILITY [None]
